FAERS Safety Report 4432942-5 (Version None)
Quarter: 2004Q3

REPORT INFORMATION
  Report Type: 
  Country: None (occurrence: None)
  Receive Date: 20040823
  Receipt Date: 20040810
  Transmission Date: 20050211
  Serious: Yes (Hospitalization)
  Sender: FDA-Public Use
  Company Number: 2004227826CH

PATIENT
  Age: 63 Year
  Sex: Female

DRUGS (7)
  1. CAMPTOSAR [Suspect]
     Indication: ADENOCARCINOMA
     Dosage: ONCE, IV
     Route: 042
     Dates: start: 20040517, end: 20040517
  2. FLUOROURACIL [Concomitant]
  3. LEUCOVORIN CALCIUM [Concomitant]
  4. SINTROM [Concomitant]
  5. TOREM [Concomitant]
  6. TEMESTA [Concomitant]
  7. TRAMADOL HCL [Concomitant]

REACTIONS (5)
  - ASTHENIA [None]
  - BRONCHOSPASM [None]
  - CHOLINERGIC SYNDROME [None]
  - DIPLOPIA [None]
  - DYSPNOEA [None]
